FAERS Safety Report 6182955-0 (Version None)
Quarter: 2009Q2

REPORT INFORMATION
  Report Type: 
  Country: None (occurrence: None)
  Receive Date: 20090507
  Receipt Date: 20090428
  Transmission Date: 20091009
  Serious: Yes (Other)
  Sender: FDA-Public Use
  Company Number: US-JNJFOC-20090302288

PATIENT
  Sex: Female
  Weight: 69.4 kg

DRUGS (3)
  1. REMICADE [Suspect]
     Route: 042
  2. REMICADE [Suspect]
     Indication: CROHN'S DISEASE
     Route: 042
  3. COLCHICINE [Concomitant]
     Indication: BEHCET'S SYNDROME

REACTIONS (1)
  - DEAFNESS UNILATERAL [None]
